FAERS Safety Report 4957386-9 (Version None)
Quarter: 2006Q1

REPORT INFORMATION
  Report Type: 
  Country: None (occurrence: None)
  Receive Date: 20060327
  Receipt Date: 20060314
  Transmission Date: 20060701
  Serious: No
  Sender: FDA-Public Use
  Company Number: TPA2006A00445

PATIENT
  Age: 32 Year
  Sex: Female
  Weight: 54.4316 kg

DRUGS (4)
  1. ROZEREM [Suspect]
     Indication: INITIAL INSOMNIA
     Dosage: 8 MG, HS, PER ORAL; 16 MG, HS, PER ORAL
     Route: 048
     Dates: start: 20060201
  2. ROZEREM [Suspect]
     Indication: INITIAL INSOMNIA
     Dosage: 8 MG, HS, PER ORAL; 16 MG, HS, PER ORAL
     Route: 048
     Dates: start: 20060201
  3. EFFEXOR XR [Suspect]
     Indication: DEPRESSION
     Dosage: 150 MG, 2 IN 1 D, PER ORAL
     Route: 048
     Dates: start: 20051201
  4. DEPAKOTE [Concomitant]

REACTIONS (1)
  - INITIAL INSOMNIA [None]
